FAERS Safety Report 17790745 (Version 1)
Quarter: 2020Q2

REPORT INFORMATION
  Report Type: Spontaneous
  Country: US (occurrence: US)
  Receive Date: 20200515
  Receipt Date: 20200515
  Transmission Date: 20200714
  Serious: No
  Sender: FDA-Public Use
  Company Number: US-SA-2020SA122206

PATIENT
  Age: 38 Year
  Sex: Female

DRUGS (1)
  1. ALDURAZYME [Suspect]
     Active Substance: LARONIDASE
     Dosage: UNK, UNK UNK

REACTIONS (2)
  - Intentional dose omission [Unknown]
  - Suspected COVID-19 [Unknown]
